FAERS Safety Report 11404334 (Version 1)
Quarter: 2015Q3

REPORT INFORMATION
  Report Type: Report from Study
  Country: CN (occurrence: CN)
  Receive Date: 20150821
  Receipt Date: 20150821
  Transmission Date: 20151125
  Serious: Yes (Other)
  Sender: FDA-Public Use
  Company Number: CN-SA-2015SA122987

PATIENT

DRUGS (5)
  1. OXALIPLATIN. [Suspect]
     Active Substance: OXALIPLATIN
     Indication: COLORECTAL CANCER
     Dosage: DRUG ADMINISTERED ON DAY 1 VIA CONTINUOUS INTRAVENOUS INFUSION FOR 3 HOURS, EVERY 2 WEEKS
     Route: 042
  2. LEUCOVORIN. [Suspect]
     Active Substance: LEUCOVORIN
     Indication: COLORECTAL CANCER
     Dosage: DRUG ADMINISTERED ON DAY 1 VIA CONTINUOUS INTRAVENOUS INFUSION FOR 2 HOURS, EVERY 2 WEEKS
     Route: 042
  3. IRINOTECAN [Suspect]
     Active Substance: IRINOTECAN
     Indication: COLORECTAL CANCER
     Dosage: DRUG ADMINISTERED ON DAY 1 VIA CONTINUOUS INTRAVENOUS INFUSION FOR 90 MIN, EVERY 2 WEEKS
     Route: 042
  4. FLUOROURACIL. [Suspect]
     Active Substance: FLUOROURACIL
     Indication: COLORECTAL CANCER
     Dosage: DRUG ADMINISTERED VIA CONTINUOUS INFUSION PUMP FOR 48 HOURS, EVERY 2 WEEKS
     Route: 065
  5. BEVACIZUMAB [Suspect]
     Active Substance: BEVACIZUMAB
     Indication: COLORECTAL CANCER
     Dosage: 500 MG/M2 VIA INTRAVENOUS INFUSION FOR 60 MINUTES, ONCE EVERY TWO WEEKS
     Route: 042

REACTIONS (3)
  - Jugular vein thrombosis [Recovered/Resolved]
  - Subclavian vein thrombosis [Recovered/Resolved]
  - Venous thrombosis [Recovered/Resolved]
